FAERS Safety Report 15032086 (Version 1)
Quarter: 2018Q2

REPORT INFORMATION
  Report Type: Spontaneous
  Country: US (occurrence: US)
  Receive Date: 20180619
  Receipt Date: 20180619
  Transmission Date: 20180711
  Serious: Yes (Hospitalization)
  Sender: FDA-Public Use
  Company Number: US-MYLANLABS-2018M1042103

PATIENT
  Age: 27 Year
  Sex: Male

DRUGS (2)
  1. EPHEDRINE. [Suspect]
     Active Substance: EPHEDRINE
     Indication: NUTRITIONAL SUPPLEMENTATION
     Route: 065
  2. CAFFEINE. [Suspect]
     Active Substance: CAFFEINE
     Indication: NUTRITIONAL SUPPLEMENTATION
     Route: 065

REACTIONS (1)
  - Cardiac failure [Unknown]
